FAERS Safety Report 8757709 (Version 1)
Quarter: 2012Q4

REPORT INFORMATION
  Report Type: 
  Country: FR (occurrence: FR)
  Receive Date: 20120828
  Receipt Date: 20120828
  Transmission Date: 20130627
  Serious: Yes (Other)
  Sender: FDA-Public Use
  Company Number: FR-ARROW-2012-14598

PATIENT
  Sex: Male
  Weight: 108 kg

DRUGS (4)
  1. VALPROATE SODIUM [Suspect]
     Indication: PROPHYLAXIS
     Dosage: UNK
     Route: 048
  2. KARDEGIC [Concomitant]
     Indication: ANTIPLATELET THERAPY
  3. PROZAC [Concomitant]
     Indication: ANXIETY
  4. TAHOR [Concomitant]
     Indication: HYPERCHOLESTEROLAEMIA

REACTIONS (2)
  - Nervous system disorder [Unknown]
  - Product substitution issue [Unknown]
